FAERS Safety Report 23731081 (Version 1)
Quarter: 2024Q2

REPORT INFORMATION
  Report Type: Other
  Country: US (occurrence: US)
  Receive Date: 20240411
  Receipt Date: 20240411
  Transmission Date: 20240716
  Serious: Yes (Death, Other)
  Sender: FDA-Public Use
  Company Number: US-ALVOGEN-2024093412

PATIENT
  Age: 14 Year
  Sex: Male

DRUGS (1)
  1. FENTANYL [Suspect]
     Active Substance: FENTANYL\FENTANYL CITRATE
     Indication: Product used for unknown indication
     Dosage: NON-PRESCRIPTION
     Route: 048

REACTIONS (5)
  - Death [Fatal]
  - Cardiac arrest [Unknown]
  - Respiratory arrest [Unknown]
  - Prescription drug used without a prescription [Unknown]
  - Incorrect route of product administration [Unknown]
